FAERS Safety Report 8446076 (Version 2)
Quarter: 2013Q3

REPORT INFORMATION
  Report Type: Spontaneous
  Country: US (occurrence: US)
  Receive Date: 20120307
  Receipt Date: 20130912
  Transmission Date: 20140515
  Serious: No
  Sender: FDA-Public Use
  Company Number: US-ASTRAZENECA-2011SE45985

PATIENT
  Age: 49 Year
  Sex: Male

DRUGS (2)
  1. ZOMIG-ZMT [Suspect]
     Route: 048
  2. ZOMIG-ZMT [Suspect]
     Route: 048

REACTIONS (5)
  - Throat irritation [Unknown]
  - Intercepted drug prescribing error [Unknown]
  - Incorrect route of drug administration [Unknown]
  - Intentional drug misuse [Unknown]
  - Migraine [Unknown]
